FAERS Safety Report 10733287 (Version 3)
Quarter: 2015Q2

REPORT INFORMATION
  Report Type: Spontaneous
  Country: US (occurrence: None)
  Receive Date: 20150120
  Receipt Date: 20150427
  Transmission Date: 20150821
  Serious: Yes (Disabling, Other)
  Sender: FDA-Public Use
  Company Number: 2014-20932

PATIENT
  Age: 79 Year
  Sex: Female

DRUGS (7)
  1. METOPROLOL TARTRATE (METOPROLOL TARTRATE) [Concomitant]
  2. FENOFIBRATE (FENOFIBRATE) [Concomitant]
     Active Substance: FENOFIBRATE
  3. ATORVASTATIN CALCIUM (ATORVASTATIN CALCIUM) [Concomitant]
     Active Substance: ATORVASTATIN CALCIUM
  4. LOSARTAN POTASSIUM (LOSARTAN POTASSIUM) [Concomitant]
     Active Substance: LOSARTAN POTASSIUM
  5. CALCIUM (CALCIUM) [Concomitant]
     Active Substance: CALCIUM
  6. EYLEA [Suspect]
     Active Substance: AFLIBERCEPT
     Indication: NEOVASCULAR AGE-RELATED MACULAR DEGENERATION
     Dosage: 2 MG MILLIGRAM(S), UNK, INTRAOCULAR?
     Route: 031
     Dates: start: 20141203
  7. ASPIRIN (ACETYLSALICYLIC ACID) [Concomitant]
     Active Substance: ASPIRIN

REACTIONS (4)
  - Blindness unilateral [None]
  - Eye infection staphylococcal [None]
  - Vitrectomy [None]
  - Endophthalmitis [None]

NARRATIVE: CASE EVENT DATE: 20141204
